FAERS Safety Report 5044358-1 (Version None)
Quarter: 2006Q2

REPORT INFORMATION
  Report Type: 
  Country: None (occurrence: None)
  Receive Date: 20060629
  Receipt Date: 20060615
  Transmission Date: 20061013
  Serious: Yes (Other)
  Sender: FDA-Public Use
  Company Number: 2006077889

PATIENT

DRUGS (1)
  1. UNASYN [Suspect]
     Dosage: INTRAVENOUS
     Route: 042

REACTIONS (1)
  - RENAL FAILURE ACUTE [None]
